FAERS Safety Report 18684706 (Version 3)
Quarter: 2021Q1

REPORT INFORMATION
  Report Type: Report from Study
  Country: US (occurrence: US)
  Receive Date: 20201230
  Receipt Date: 20210206
  Transmission Date: 20210419
  Serious: Yes (Hospitalization)
  Sender: FDA-Public Use
  Company Number: US-ROCHE-2741880

PATIENT
  Age: 63 Year
  Sex: Female
  Weight: 84 kg

DRUGS (3)
  1. ETOPOSIDE. [Suspect]
     Active Substance: ETOPOSIDE
     Indication: SMALL CELL LUNG CANCER
     Dosage: LAST ADMINISTERED DATE 03/JAN/2020.?LAST ADMINISTERED DATE 31/DEC/2020.
     Route: 065
     Dates: start: 20191119
  2. CISPLATIN. [Suspect]
     Active Substance: CISPLATIN
     Indication: SMALL CELL LUNG CANCER
     Dosage: LAST ADMINISTERED DATE ON 31/DEC/2019
     Route: 065
     Dates: start: 20191119
  3. ATEZOLIZUMAB. [Suspect]
     Active Substance: ATEZOLIZUMAB
     Indication: SMALL CELL LUNG CANCER
     Dosage: LAST ADMINISTERED DATE ON 26/MAY/2020?LAST ADMINISTERED DATE ON 16/JUN/2020
     Route: 041
     Dates: start: 20191118

REACTIONS (3)
  - Chest pain [Recovered/Resolved]
  - Anxiety [Recovering/Resolving]
  - Abdominal pain [Recovering/Resolving]

NARRATIVE: CASE EVENT DATE: 20200602
